FAERS Safety Report 12605675 (Version 1)
Quarter: 2016Q3

REPORT INFORMATION
  Report Type: Spontaneous
  Country: FR (occurrence: FR)
  Receive Date: 20160729
  Receipt Date: 20160729
  Transmission Date: 20161109
  Serious: Yes (Other)
  Sender: FDA-Public Use
  Company Number: FR-ALEMBIC PHARMACUETICALS LIMITED-2013SCAL000263

PATIENT

DRUGS (1)
  1. PRAMIPEXOLE DIHYDROCHLORIDE. [Suspect]
     Active Substance: PRAMIPEXOLE DIHYDROCHLORIDE
     Indication: PRODUCT USED FOR UNKNOWN INDICATION
     Dosage: 0.7 MG, UNK

REACTIONS (6)
  - Decreased interest [Recovered/Resolved]
  - Condition aggravated [None]
  - Apathy [Recovered/Resolved]
  - Major depression [Recovered/Resolved]
  - Restless legs syndrome [None]
  - Impulse-control disorder [Unknown]
